FAERS Safety Report 7064991-5 (Version None)
Quarter: 2010Q4

REPORT INFORMATION
  Report Type: 
  Country: None (occurrence: None)
  Receive Date: 20101027
  Receipt Date: 20101013
  Transmission Date: 20110411
  Serious: Yes (Other)
  Sender: FDA-Public Use
  Company Number: PHHY2010US64319

PATIENT
  Sex: Female

DRUGS (1)
  1. TEGRETOL [Suspect]
     Dosage: UNK

REACTIONS (4)
  - ALOPECIA [None]
  - DEAFNESS [None]
  - SKIN HAEMORRHAGE [None]
  - VISUAL IMPAIRMENT [None]
